FAERS Safety Report 24347821 (Version 1)
Quarter: 2024Q3

REPORT INFORMATION
  Report Type: Report from Study
  Country: US (occurrence: US)
  Receive Date: 20240922
  Receipt Date: 20240922
  Transmission Date: 20241016
  Serious: Yes (Other)
  Sender: ABBVIE
  Company Number: US-ABBVIE-5930066

PATIENT
  Sex: Female

DRUGS (1)
  1. RINVOQ [Suspect]
     Active Substance: UPADACITINIB
     Indication: Rheumatoid arthritis
     Route: 048
     Dates: start: 20240601

REACTIONS (4)
  - Back pain [Unknown]
  - Drug ineffective [Unknown]
  - Finger deformity [Unknown]
  - Exostosis [Unknown]

NARRATIVE: CASE EVENT DATE: 20240101
